FAERS Safety Report 18285719 (Version 1)
Quarter: 2020Q3

REPORT INFORMATION
  Report Type: Report from Study
  Country: GB (occurrence: GB)
  Receive Date: 20200918
  Receipt Date: 20200918
  Transmission Date: 20201103
  Serious: Yes (Other)
  Sender: FDA-Public Use
  Company Number: NVSC2020GB254035

PATIENT
  Sex: Male

DRUGS (1)
  1. HYRIMOZ [Suspect]
     Active Substance: ADALIMUMAB-ADAZ
     Indication: CROHN^S DISEASE
     Dosage: 1 DF, Q2W  (160 MG WEEK 0, 80 MG WEEK 02, 40 MG FORTNIGHTLY)
     Route: 058
     Dates: start: 20200828

REACTIONS (1)
  - Loss of consciousness [Unknown]
